FAERS Safety Report 10068159 (Version 2)
Quarter: 2014Q2

REPORT INFORMATION
  Report Type: Spontaneous
  Country: US (occurrence: US)
  Receive Date: 20140409
  Receipt Date: 20140409
  Transmission Date: 20141212
  Serious: No
  Sender: FDA-Public Use
  Company Number: US-PFIZER INC-2013310725

PATIENT
  Age: 61 Year
  Sex: Female

DRUGS (1)
  1. RAPAMUNE [Suspect]
     Indication: RENAL TRANSPLANT
     Dosage: 0.5 MG, UNK
     Dates: start: 20111202

REACTIONS (2)
  - Oral herpes [Unknown]
  - Product packaging issue [Unknown]
